FAERS Safety Report 18401731 (Version 1)
Quarter: 2020Q4

REPORT INFORMATION
  Report Type: Spontaneous
  Country: US (occurrence: US)
  Receive Date: 20201019
  Receipt Date: 20201019
  Transmission Date: 20210114
  Serious: Yes (Death)
  Sender: FDA-Public Use
  Company Number: NVSC2020US280114

PATIENT
  Sex: Male

DRUGS (1)
  1. ZARXIO [Suspect]
     Active Substance: FILGRASTIM-SNDZ
     Indication: BRAIN NEOPLASM MALIGNANT
     Dosage: 0.48 MG, QD (INJECT 0.8 ML UNDER THE SKIN)
     Route: 065

REACTIONS (2)
  - Death [Fatal]
  - Product use in unapproved indication [Unknown]
